FAERS Safety Report 25728981 (Version 1)
Quarter: 2025Q3

REPORT INFORMATION
  Report Type: Spontaneous
  Country: GB (occurrence: GB)
  Receive Date: 20250826
  Receipt Date: 20250826
  Transmission Date: 20251020
  Serious: Yes (Other)
  Sender: MERCK SHARP & DOHME LLC
  Company Number: None

PATIENT
  Age: 23 Year
  Sex: Male
  Weight: 81 kg

DRUGS (5)
  1. SUGAMMADEX [Suspect]
     Active Substance: SUGAMMADEX
     Indication: Anaesthesia reversal
     Dates: start: 20250816, end: 20250816
  2. ONDANSETRON [Concomitant]
     Active Substance: ONDANSETRON
     Indication: Anaesthesia
     Dates: start: 20250816
  3. PROPOFOL [Concomitant]
     Active Substance: PROPOFOL
     Indication: Anaesthesia
     Dates: start: 20250816
  4. FENTANYL [Concomitant]
     Active Substance: FENTANYL
     Indication: Anaesthesia
     Dates: start: 20250816
  5. ROCURONIUM [Concomitant]
     Active Substance: ROCURONIUM BROMIDE
     Indication: Anaesthesia
     Dates: start: 20250816

REACTIONS (1)
  - Angioedema [Recovering/Resolving]

NARRATIVE: CASE EVENT DATE: 20250816
